FAERS Safety Report 6443256-6 (Version None)
Quarter: 2009Q4

REPORT INFORMATION
  Report Type: 
  Country: None (occurrence: None)
  Receive Date: 20091117
  Receipt Date: 20091109
  Transmission Date: 20100525
  Serious: Yes (Other)
  Sender: FDA-Public Use
  Company Number: GXKR2009GB12321

PATIENT
  Age: 69 Year
  Sex: Female

DRUGS (10)
  1. CYCLOSPORINE [Suspect]
     Indication: LICHEN SCLEROSUS
     Dosage: 175 MG/DAY (9800 MG TOTAL)
     Route: 065
     Dates: start: 19980101
  2. CYCLOSPORINE [Suspect]
     Dosage: SMALL DOSE
     Route: 065
  3. MYCOPHENOLATE MOFETIL (NGX) [Suspect]
     Indication: LICHEN SCLEROSUS
     Dosage: 2 G/DAY; (675 G TOTAL)
     Route: 065
     Dates: start: 20000101, end: 20010101
  4. METHYLPREDNISOLONE [Suspect]
     Indication: LICHEN SCLEROSUS
     Dosage: 5 G (TOTAL)
     Route: 065
     Dates: start: 19980101
  5. PREDNISOLONE [Suspect]
     Indication: LICHEN SCLEROSUS
     Dosage: 10 MG/DAY
     Dates: start: 19930101, end: 19990101
  6. METHOXSALEN [Suspect]
     Indication: LICHEN SCLEROSUS
     Route: 061
     Dates: start: 19960101
  7. PSORALENS FOR TOPICAL USE [Concomitant]
     Dosage: 7.5 J/CM2 (1 COURSE)
     Route: 061
     Dates: start: 19960101
  8. UV-A LIGHT [Concomitant]
     Dosage: TWO COURSES: 63 WHOLE BODY EXPOSURES, 1422 J/CM2;  61 LOCAL EXPOSURES TO ANOGENITAL AREA 1463 J/CM2
     Route: 065
     Dates: start: 20020101
  9. STEROIDS NOS [Concomitant]
     Route: 061
  10. ANTISEPTICS [Concomitant]
     Route: 065

REACTIONS (1)
  - SQUAMOUS CELL CARCINOMA [None]
